FAERS Safety Report 15673190 (Version 1)
Quarter: 2018Q4

REPORT INFORMATION
  Report Type: Spontaneous
  Country: US (occurrence: US)
  Receive Date: 20181129
  Receipt Date: 20181129
  Transmission Date: 20190205
  Serious: Yes (Other)
  Sender: FDA-Public Use
  Company Number: US-PFIZER INC-2018476075

PATIENT
  Age: 11 Year
  Sex: Male

DRUGS (1)
  1. VIAGRA [Suspect]
     Active Substance: SILDENAFIL CITRATE
     Dosage: 4 MG, UNK

REACTIONS (4)
  - Intentional product misuse [Unknown]
  - Vision blurred [Unknown]
  - Erection increased [Unknown]
  - Suspected counterfeit product [Unknown]
